FAERS Safety Report 5939618-3 (Version None)
Quarter: 2008Q4

REPORT INFORMATION
  Report Type: 
  Country: None (occurrence: None)
  Receive Date: 20081030
  Receipt Date: 20081030
  Transmission Date: 20090506
  Serious: Yes (Life-Threatening, Other)
  Sender: FDA-Public Use
  Company Number: None

PATIENT
  Age: 79 Year
  Sex: Female
  Weight: 77.1115 kg

DRUGS (2)
  1. REGLAN [Suspect]
     Indication: GASTROOESOPHAGEAL REFLUX DISEASE
     Dosage: ONE PILL BEFORE MEALS 3X A DAY OTHER
     Route: 050
  2. REGLAN [Suspect]
     Indication: NAUSEA
     Dosage: ONE PILL BEFORE MEALS 3X A DAY OTHER
     Route: 050

REACTIONS (8)
  - COMMUNICATION DISORDER [None]
  - DYSSTASIA [None]
  - GAIT DISTURBANCE [None]
  - HYPERTENSION [None]
  - IMPAIRED SELF-CARE [None]
  - MOBILITY DECREASED [None]
  - PERFORMANCE STATUS DECREASED [None]
  - TREMOR [None]
